FAERS Safety Report 8965015 (Version 2)
Quarter: 2013Q1

REPORT INFORMATION
  Report Type: Spontaneous
  Country: US (occurrence: US)
  Receive Date: 20121213
  Receipt Date: 20130204
  Transmission Date: 20140127
  Serious: Yes (Other)
  Sender: FDA-Public Use
  Company Number: US-JNJFOC-20121201602

PATIENT
  Age: 72 None
  Sex: Female
  Weight: 97.52 kg

DRUGS (8)
  1. XARELTO [Suspect]
     Indication: CEREBROVASCULAR ACCIDENT PROPHYLAXIS
     Route: 048
     Dates: start: 201207, end: 201207
  2. XARELTO [Suspect]
     Indication: CEREBROVASCULAR ACCIDENT PROPHYLAXIS
     Route: 048
     Dates: start: 20121023
  3. XARELTO [Suspect]
     Indication: ATRIAL FIBRILLATION
     Route: 048
     Dates: start: 20121023
  4. XARELTO [Suspect]
     Indication: ATRIAL FIBRILLATION
     Route: 048
     Dates: start: 201207, end: 201207
  5. COREG [Concomitant]
     Indication: BLOOD PRESSURE
     Route: 048
     Dates: start: 2012
  6. LEVOXYL [Concomitant]
     Indication: THYROID DISORDER
     Route: 048
     Dates: start: 2000
  7. LEVOXYL [Concomitant]
     Indication: THYROID DISORDER
     Route: 048
     Dates: start: 2000
  8. BENICAR [Concomitant]
     Indication: BLOOD PRESSURE
     Route: 048
     Dates: start: 2010

REACTIONS (3)
  - Heart rate irregular [Unknown]
  - Local swelling [Not Recovered/Not Resolved]
  - Pruritus [Recovered/Resolved]
